FAERS Safety Report 13690812 (Version 2)
Quarter: 2017Q3

REPORT INFORMATION
  Report Type: Spontaneous
  Country: US (occurrence: US)
  Receive Date: 20170626
  Receipt Date: 20170928
  Transmission Date: 20171127
  Serious: No
  Sender: FDA-Public Use
  Company Number: US-CLOVIS ONCOLOGY-CLO-2017-000573

PATIENT
  Age: 58 Year
  Sex: Female

DRUGS (1)
  1. RUBRACA [Suspect]
     Active Substance: RUCAPARIB CAMSYLATE
     Indication: OVARIAN CANCER
     Dosage: 600 MG, BID
     Route: 048
     Dates: start: 20170606, end: 20170801

REACTIONS (11)
  - Blood creatinine increased [Unknown]
  - Dyspnoea exertional [Unknown]
  - Haemoglobin decreased [Unknown]
  - Fatigue [Unknown]
  - Vomiting [Unknown]
  - Dehydration [Unknown]
  - Weight decreased [Unknown]
  - Decreased appetite [Unknown]
  - Ultrasound kidney abnormal [Unknown]
  - Dyspepsia [Unknown]
  - Nausea [Unknown]

NARRATIVE: CASE EVENT DATE: 2017
